FAERS Safety Report 24791862 (Version 1)
Quarter: 2024Q4

REPORT INFORMATION
  Report Type: Spontaneous
  Country: US (occurrence: US)
  Receive Date: 20241231
  Receipt Date: 20241231
  Transmission Date: 20250115
  Serious: No
  Sender: ACCORD
  Company Number: US-Accord-420545

PATIENT
  Sex: Female

DRUGS (1)
  1. SERTRALINE [Suspect]
     Active Substance: SERTRALINE HYDROCHLORIDE
     Indication: Product used for unknown indication
     Dosage: 100MG 2 TABLETS BY MOUTH DAILY (200MG PER DAY)
     Route: 048
     Dates: start: 20240413

REACTIONS (3)
  - Throat irritation [Unknown]
  - Pharyngeal swelling [Unknown]
  - Chest pain [Unknown]

NARRATIVE: CASE EVENT DATE: 20240401
